FAERS Safety Report 4895265-6 (Version None)
Quarter: 2006Q1

REPORT INFORMATION
  Report Type: 
  Country: None (occurrence: None)
  Receive Date: 20060130
  Receipt Date: 20060118
  Transmission Date: 20060701
  Serious: Yes (Hospitalization)
  Sender: FDA-Public Use
  Company Number: JP-JPN-A200600246

PATIENT
  Age: 20 Year
  Sex: Male

DRUGS (3)
  1. FLOLAN [Suspect]
     Indication: PULMONARY HYPERTENSION
     Route: 042
     Dates: start: 19990816
  2. WARFARIN [Suspect]
     Route: 048
  3. FUROSEMIDE [Concomitant]
     Route: 048

REACTIONS (1)
  - PULMONARY ALVEOLAR HAEMORRHAGE [None]
